FAERS Safety Report 6795527-1 (Version None)
Quarter: 2010Q2

REPORT INFORMATION
  Report Type: 
  Country: None (occurrence: None)
  Receive Date: 20100625
  Receipt Date: 20100617
  Transmission Date: 20101027
  Serious: Yes (Death, Hospitalization)
  Sender: FDA-Public Use
  Company Number: CA-AMGEN-QUU412803

PATIENT
  Age: 87 Year
  Sex: Female
  Weight: 78.1 kg

DRUGS (16)
  1. ENBREL [Suspect]
     Indication: RHEUMATOID ARTHRITIS
     Route: 058
  2. PREDNISONE [Suspect]
     Indication: RHEUMATOID ARTHRITIS
     Route: 048
  3. PREDNISONE [Suspect]
     Indication: INTERSTITIAL LUNG DISEASE
  4. COZAAR [Concomitant]
  5. LIPITOR [Concomitant]
  6. ASPIRIN [Concomitant]
  7. FUROSEMIDE [Concomitant]
  8. SERTRALINE HCL [Concomitant]
  9. UNSPECIFIED MEDICATION [Concomitant]
  10. PANTOPRAZOLE [Concomitant]
  11. CALCIUM WITH VITAMIN D [Concomitant]
  12. FOSAMAX [Concomitant]
  13. ZOPICLONE [Concomitant]
  14. FLOVENT [Concomitant]
  15. ATROVENT [Concomitant]
  16. SALBUTAMOL [Concomitant]

REACTIONS (6)
  - DYSPNOEA [None]
  - OEDEMA PERIPHERAL [None]
  - PNEUMONIA [None]
  - PRODUCTIVE COUGH [None]
  - RESPIRATORY DISTRESS [None]
  - SPUTUM DISCOLOURED [None]
